FAERS Safety Report 26125528 (Version 2)
Quarter: 2025Q4

REPORT INFORMATION
  Report Type: Spontaneous
  Country: EU (occurrence: EU)
  Receive Date: 20251205
  Receipt Date: 20251215
  Transmission Date: 20260118
  Serious: Yes (Other)
  Sender: SANDOZ
  Company Number: EU-AMGEN-ITASP2025229307

PATIENT
  Age: 12 Month
  Sex: Female

DRUGS (12)
  1. ADALIMUMAB [Suspect]
     Active Substance: ADALIMUMAB
     Indication: Loeys-Dietz syndrome
     Dosage: UNK, QWK,  DOSAGE1: UNIT=NOT AVAILABLE
     Route: 065
  2. ADALIMUMAB [Suspect]
     Active Substance: ADALIMUMAB
     Indication: Off label use
  3. ANAKINRA [Suspect]
     Active Substance: ANAKINRA
     Indication: Loeys-Dietz syndrome
     Dosage: UNK
     Route: 065
  4. CANAKINUMAB [Suspect]
     Active Substance: CANAKINUMAB
     Indication: Loeys-Dietz syndrome
     Dosage: UNK
     Route: 065
  5. ETANERCEPT [Suspect]
     Active Substance: ETANERCEPT
     Indication: Loeys-Dietz syndrome
     Dosage: UNK, DOSAGE1: UNIT=NOT AVAILABLE
     Route: 065
  6. ETANERCEPT [Suspect]
     Active Substance: ETANERCEPT
     Indication: Off label use
  7. INFLIXIMAB [Suspect]
     Active Substance: INFLIXIMAB
     Indication: Loeys-Dietz syndrome
     Dosage: UNK
     Route: 065
  8. METHOTREXATE [Suspect]
     Active Substance: METHOTREXATE
     Indication: Loeys-Dietz syndrome
     Dosage: UNK
     Route: 065
  9. USTEKINUMAB [Suspect]
     Active Substance: USTEKINUMAB
     Indication: Loeys-Dietz syndrome
     Dosage: UNK
     Route: 065
  10. USTEKINUMAB [Suspect]
     Active Substance: USTEKINUMAB
     Indication: Off label use
  11. METHYLPREDNISOLONE [Concomitant]
     Active Substance: METHYLPREDNISOLONE
     Indication: Loeys-Dietz syndrome
     Dosage: UNK
     Route: 065
  12. METHYLPREDNISOLONE [Concomitant]
     Active Substance: METHYLPREDNISOLONE
     Dosage: UNK, DOSE TAPERED
     Route: 065

REACTIONS (7)
  - Loeys-Dietz syndrome [Unknown]
  - Periostitis [Unknown]
  - Impaired quality of life [Unknown]
  - Condition aggravated [Unknown]
  - Drug ineffective for unapproved indication [Unknown]
  - Drug effective for unapproved indication [Unknown]
  - Off label use [Unknown]
